FAERS Safety Report 19465758 (Version 2)
Quarter: 2021Q2

REPORT INFORMATION
  Report Type: Report from Study
  Country: DE (occurrence: DE)
  Receive Date: 20210626
  Receipt Date: 20210626
  Transmission Date: 20210717
  Serious: Yes (Other)
  Sender: FDA-Public Use
  Company Number: DE-TAKEDA-2020TUS047256

PATIENT
  Age: 60 Year
  Sex: Female

DRUGS (12)
  1. TEDUGLUTIDE [Suspect]
     Active Substance: TEDUGLUTIDE
     Indication: SHORT-BOWEL SYNDROME
     Dosage: 1.1 MILLIGRAM (0.03 MG/KG, 7 TED DOSES PER WEEK)
     Route: 065
     Dates: start: 20170613, end: 20180509
  2. COLECALCIFEROL [Concomitant]
     Active Substance: CHOLECALCIFEROL
     Dosage: 1000 IU INTERNATIONAL UNIT(S)
     Route: 048
     Dates: start: 201906
  3. COLECALCIFEROL [Concomitant]
     Active Substance: CHOLECALCIFEROL
     Indication: VITAMIN D DEFICIENCY
     Dosage: 1000 IU INTERNATIONAL UNIT(S), QD
     Route: 048
     Dates: start: 201904
  4. TEDUGLUTIDE [Suspect]
     Active Substance: TEDUGLUTIDE
     Indication: SHORT-BOWEL SYNDROME
     Dosage: 1.1 MILLIGRAM (0.03 MG/KG, 7 TED DOSES PER WEEK)
     Route: 065
     Dates: start: 20170613, end: 20180509
  5. TEDUGLUTIDE [Suspect]
     Active Substance: TEDUGLUTIDE
     Indication: SHORT-BOWEL SYNDROME
     Dosage: 1.1 MILLIGRAM (0.03 MG/KG, 7 TED DOSES PER WEEK)
     Route: 065
     Dates: start: 20170613, end: 20180509
  6. TEDUGLUTIDE [Suspect]
     Active Substance: TEDUGLUTIDE
     Dosage: 2.2 MILLIGRAM (0.05 MG/KG, 7 TED DOSES PER WEEK)
     Route: 065
     Dates: start: 20180510, end: 201906
  7. TEDUGLUTIDE [Suspect]
     Active Substance: TEDUGLUTIDE
     Dosage: 2.2 MILLIGRAM (0.05 MG/KG, 7 TED DOSES PER WEEK)
     Route: 065
     Dates: start: 20180510, end: 201906
  8. TEDUGLUTIDE [Suspect]
     Active Substance: TEDUGLUTIDE
     Dosage: 2.2 MILLIGRAM (0.05 MG/KG, 7 TED DOSES PER WEEK)
     Route: 065
     Dates: start: 20180510, end: 201906
  9. CALCIUM [Concomitant]
     Active Substance: CALCIUM
     Indication: CALCIUM DEFICIENCY
     Dosage: 500 MILLIGRAM, QD
     Route: 048
     Dates: start: 201911
  10. TEDUGLUTIDE [Suspect]
     Active Substance: TEDUGLUTIDE
     Dosage: 2.2 MILLIGRAM (0.05 MG/KG, 7 TED DOSES PER WEEK)
     Route: 065
     Dates: start: 20180510, end: 201906
  11. TEDUGLUTIDE [Suspect]
     Active Substance: TEDUGLUTIDE
     Indication: SHORT-BOWEL SYNDROME
     Dosage: 1.1 MILLIGRAM (0.03 MG/KG, 7 TED DOSES PER WEEK)
     Route: 065
     Dates: start: 20170613, end: 20180509
  12. MIRTAZAPINE. [Concomitant]
     Active Substance: MIRTAZAPINE
     Indication: SLEEP DISORDER
     Dosage: 7.50 MILLIGRAM, QD
     Route: 048
     Dates: start: 201810

REACTIONS (2)
  - Renal impairment [Not Recovered/Not Resolved]
  - Paraesthesia [Not Recovered/Not Resolved]

NARRATIVE: CASE EVENT DATE: 202002
